FAERS Safety Report 4697143-4 (Version None)
Quarter: 2005Q2

REPORT INFORMATION
  Report Type: 
  Country: None (occurrence: None)
  Receive Date: 20050620
  Receipt Date: 20050603
  Transmission Date: 20051028
  Serious: No
  Sender: FDA-Public Use
  Company Number: 11459

PATIENT
  Sex: Male

DRUGS (6)
  1. METHOTREXATE [Suspect]
     Indication: JUVENILE ARTHRITIS
  2. ETANERCEPT [Suspect]
     Indication: JUVENILE ARTHRITIS
  3. CORTICOSTEROIDS [Suspect]
  4. NAPROXEN [Suspect]
  5. INFLIXIMAB [Suspect]
     Indication: JUVENILE ARTHRITIS
  6. NSAIDS [Suspect]

REACTIONS (10)
  - ADRENAL SUPPRESSION [None]
  - ARTHROPATHY [None]
  - CAMPTODACTYLY ACQUIRED [None]
  - CUSHINGOID [None]
  - HIP DEFORMITY [None]
  - NAUSEA [None]
  - OSTEOPOROSIS [None]
  - PERICARDITIS [None]
  - PSEUDOPORPHYRIA [None]
  - VOMITING [None]
